FAERS Safety Report 5477210-8 (Version None)
Quarter: 2007Q4

REPORT INFORMATION
  Report Type: 
  Country: None (occurrence: None)
  Receive Date: 20071004
  Receipt Date: 20070919
  Transmission Date: 20080405
  Serious: Yes (Death)
  Sender: FDA-Public Use
  Company Number: B0488884A

PATIENT
  Age: 55 Year
  Sex: Male

DRUGS (3)
  1. AUGMENTIN '125' [Suspect]
     Indication: SEPSIS
     Route: 042
  2. HYDROCORTISONE [Concomitant]
  3. RANITIDINE [Concomitant]

REACTIONS (1)
  - JAUNDICE [None]
